FAERS Safety Report 19239865 (Version 1)
Quarter: 2021Q2

REPORT INFORMATION
  Report Type: Spontaneous
  Country: CN (occurrence: CN)
  Receive Date: 20210510
  Receipt Date: 20210510
  Transmission Date: 20210717
  Serious: Yes (Other)
  Sender: FDA-Public Use
  Company Number: CN-PFIZER INC-2021477309

PATIENT
  Age: 15 Month
  Sex: Female
  Weight: 9.5 kg

DRUGS (4)
  1. YI TAN JING [Concomitant]
     Indication: BRONCHIOLITIS
     Dosage: 6 ML, 2X/DAY
     Route: 048
     Dates: start: 20210410, end: 20210412
  2. BRICANYL [Concomitant]
     Active Substance: TERBUTALINE SULFATE
     Indication: BRONCHIOLITIS
     Dosage: 2.5 MG, 2X/DAY
     Dates: start: 20210410, end: 20210412
  3. ZITHROMAX [Suspect]
     Active Substance: AZITHROMYCIN DIHYDRATE
     Indication: BRONCHIOLITIS
     Dosage: 75 MG, 1X/DAY
     Route: 048
     Dates: start: 20210410, end: 20210412
  4. PULMICORT TURBUHALER [Concomitant]
     Active Substance: BUDESONIDE
     Indication: BRONCHIOLITIS
     Dosage: 1 MG, 2X/DAY
     Dates: start: 20210410, end: 20210412

REACTIONS (6)
  - Pruritus [Recovered/Resolved]
  - Hepatic enzyme increased [Recovering/Resolving]
  - Cholestasis [Recovering/Resolving]
  - Abdominal distension [Recovering/Resolving]
  - Dyspepsia [Recovering/Resolving]
  - Decreased appetite [Recovering/Resolving]

NARRATIVE: CASE EVENT DATE: 20210412
